FAERS Safety Report 8768115 (Version 1)
Quarter: 2012Q4

REPORT INFORMATION
  Report Type: 
  Country: US (occurrence: US)
  Receive Date: 20120904
  Receipt Date: 20120904
  Transmission Date: 20130627
  Serious: No
  Sender: FDA-Public Use
  Company Number: US-AMGEN-USASP2012052017

PATIENT
  Age: 65 Year
  Sex: Female
  Weight: 85.26 kg

DRUGS (2)
  1. ENBREL [Suspect]
     Indication: PSORIATIC ARTHROPATHY
     Dosage: 50 mg, qwk
     Route: 058
     Dates: start: 2005, end: 20120815
  2. ENBREL [Suspect]
     Indication: PSORIASIS

REACTIONS (2)
  - Abdominal pain upper [Recovered/Resolved]
  - Infection [Recovered/Resolved]
